FAERS Safety Report 13040319 (Version 1)
Quarter: 2016Q4

REPORT INFORMATION
  Report Type: Spontaneous
  Country: IN (occurrence: IN)
  Receive Date: 20161219
  Receipt Date: 20161219
  Transmission Date: 20170207
  Serious: Yes (Hospitalization)
  Sender: FDA-Public Use
  Company Number: IN-IPCA LABORATORIES LIMITED-IPC201612-000994

PATIENT
  Age: 7 Year
  Sex: Male

DRUGS (2)
  1. CHLOROQUINE PHOSPHATE. [Suspect]
     Active Substance: CHLOROQUINE PHOSPHATE
     Indication: PLASMODIUM VIVAX INFECTION
  2. PRIMAQUINE [Suspect]
     Active Substance: PRIMAQUINE PHOSPHATE
     Indication: PLASMODIUM VIVAX INFECTION

REACTIONS (2)
  - Haemolysis [Recovered/Resolved]
  - Methaemoglobinaemia [Recovered/Resolved]
